FAERS Safety Report 14987620 (Version 2)
Quarter: 2018Q3

REPORT INFORMATION
  Report Type: Spontaneous
  Country: BR (occurrence: BR)
  Receive Date: 20180608
  Receipt Date: 20180828
  Transmission Date: 20181010
  Serious: Yes (Hospitalization)
  Sender: FDA-Public Use
  Company Number: PHHY2018BR014536

PATIENT
  Sex: Male
  Weight: 52 kg

DRUGS (8)
  1. FORASEQ [Suspect]
     Active Substance: BUDESONIDE\FORMOTEROL FUMARATE
     Indication: PNEUMONIA
  2. BAMIFIX [Concomitant]
     Active Substance: BAMIFYLLINE HYDROCHLORIDE
     Indication: PNEUMONIA
     Dosage: UNK UNK, BID
     Route: 048
  3. ATENOLOL. [Concomitant]
     Active Substance: ATENOLOL
     Indication: AORTIC VALVE STENOSIS
     Dosage: 1 DF, QD
     Route: 048
     Dates: start: 2003
  4. DIOVAN [Suspect]
     Active Substance: VALSARTAN
     Indication: AORTIC VALVE STENOSIS
     Dosage: 1 DF, UNK
     Route: 048
     Dates: start: 2003
  5. FORASEQ [Suspect]
     Active Substance: BUDESONIDE\FORMOTEROL FUMARATE
     Indication: DYSPNOEA
     Dosage: UNK UNK, BID
     Route: 055
  6. HIGROTON [Suspect]
     Active Substance: CHLORTHALIDONE
     Indication: AORTIC VALVE STENOSIS
     Dosage: 1 DF, QD
     Route: 048
     Dates: start: 2003
  7. BAMIFIX [Concomitant]
     Active Substance: BAMIFYLLINE HYDROCHLORIDE
     Indication: DYSPNOEA
  8. MAREVAN [Concomitant]
     Active Substance: WARFARIN SODIUM
     Indication: AORTIC VALVE STENOSIS
     Dosage: 1 DF, QD
     Route: 048

REACTIONS (4)
  - Dyspnoea [Recovering/Resolving]
  - Cough [Recovering/Resolving]
  - Product use in unapproved indication [Unknown]
  - Pneumonia [Recovering/Resolving]
